FAERS Safety Report 4303461-1 (Version None)
Quarter: 2004Q1

REPORT INFORMATION
  Report Type: 
  Country: None (occurrence: None)
  Receive Date: 20040223
  Receipt Date: 20040206
  Transmission Date: 20041129
  Serious: Yes (Hospitalization)
  Sender: FDA-Public Use
  Company Number: 2004US002022

PATIENT
  Age: 77 Year
  Sex: Female
  Weight: 90.7 kg

DRUGS (9)
  1. ALOXI [Suspect]
     Indication: PROPHYLAXIS OF NAUSEA AND VOMITING
     Dosage: 0.25 MG, SINGLE, INTRAVENOUS
     Route: 042
     Dates: start: 20040123, end: 20040123
  2. PLAVIX [Concomitant]
  3. PRAVACHOL [Concomitant]
  4. ASPIRIN ^BAYER^ (ACVETYLSALICYLIC ACID) [Concomitant]
  5. TYLENOL PM (DIPHENHYDRAMINE, PARACETAMOL) [Concomitant]
  6. METOPROLOL (METOPROLOL) [Concomitant]
  7. LISINOPRIL [Concomitant]
  8. LEXAPRO [Concomitant]
  9. CENTRUM (VITAMIN NOS, MINERALS NOS) [Concomitant]

REACTIONS (6)
  - BLOOD PRESSURE SYSTOLIC INCREASED [None]
  - BRONCHOSPASM [None]
  - CHEST DISCOMFORT [None]
  - DRUG HYPERSENSITIVITY [None]
  - DYSPNOEA [None]
  - HEART RATE DECREASED [None]
